FAERS Safety Report 10096107 (Version 2)
Quarter: 2014Q2

REPORT INFORMATION
  Report Type: Spontaneous
  Country: US (occurrence: US)
  Receive Date: 20140422
  Receipt Date: 20140422
  Transmission Date: 20141212
  Serious: No
  Sender: FDA-Public Use
  Company Number: US-MYLANLABS-2013S1019909

PATIENT
  Age: 75 Year
  Sex: Female
  Weight: 49.9 kg

DRUGS (1)
  1. PAROXETINE TABLETS USP [Suspect]
     Indication: DEPRESSION
     Route: 048
     Dates: start: 20130830, end: 201308

REACTIONS (1)
  - Headache [Recovered/Resolved]
